FAERS Safety Report 4508812-0 (Version None)
Quarter: 2004Q4

REPORT INFORMATION
  Report Type: 
  Country: None (occurrence: None)
  Receive Date: 20041123
  Receipt Date: 20040819
  Transmission Date: 20050328
  Serious: Yes (Other)
  Sender: FDA-Public Use
  Company Number: US-GLAXOSMITHKLINE-A0522820A

PATIENT
  Age: 31 Year
  Sex: Female
  Weight: 102.7 kg

DRUGS (3)
  1. WELLBUTRIN [Suspect]
     Indication: DEPRESSION
     Dosage: 150MG TWICE PER DAY
     Route: 048
     Dates: start: 20040719, end: 20040808
  2. TOPROL-XL [Concomitant]
  3. LEVOTHYROXIN [Concomitant]

REACTIONS (3)
  - ERYTHEMA MULTIFORME [None]
  - OEDEMA PERIPHERAL [None]
  - URTICARIA [None]
